FAERS Safety Report 5663878-X (Version None)
Quarter: 2008Q1

REPORT INFORMATION
  Report Type: 
  Country: None (occurrence: None)
  Receive Date: 20080311
  Receipt Date: 20080229
  Transmission Date: 20080703
  Serious: Yes (Disabling)
  Sender: FDA-Public Use
  Company Number: 3418

PATIENT
  Age: 50 Year
  Sex: Male

DRUGS (2)
  1. ACYCLOVIR [Suspect]
     Indication: NECROTISING RETINITIS
     Dosage: 850 MG TID IV
     Route: 042
  2. PREDNISOLONE [Concomitant]

REACTIONS (2)
  - NEUROTOXICITY [None]
  - RENAL IMPAIRMENT [None]
